FAERS Safety Report 5518608-9 (Version None)
Quarter: 2007Q4

REPORT INFORMATION
  Report Type: 
  Country: None (occurrence: None)
  Receive Date: 20071115
  Receipt Date: 20071107
  Transmission Date: 20080405
  Serious: Yes (Other)
  Sender: FDA-Public Use
  Company Number: AU-PFIZER INC-2007094369

PATIENT
  Sex: Female

DRUGS (2)
  1. ZOLOFT [Suspect]
  2. EFFEXOR [Suspect]

REACTIONS (1)
  - ABORTION SPONTANEOUS [None]
